FAERS Safety Report 11864816 (Version 1)
Quarter: 2015Q4

REPORT INFORMATION
  Report Type: Spontaneous
  Country: CA (occurrence: CA)
  Receive Date: 20151223
  Receipt Date: 20151223
  Transmission Date: 20160305
  Serious: Yes (Hospitalization)
  Sender: FDA-Public Use
  Company Number: CA-ASTRAZENECA-2015SF27527

PATIENT
  Age: 70 Year
  Sex: Male
  Weight: 124 kg

DRUGS (19)
  1. CLOPIDOGREL [Concomitant]
     Active Substance: CLOPIDOGREL BISULFATE
  2. LORAZEPAM. [Concomitant]
     Active Substance: LORAZEPAM
  3. ASA [Concomitant]
     Active Substance: ASPIRIN
  4. PREGABALIN. [Concomitant]
     Active Substance: PREGABALIN
  5. SYMBICORT [Concomitant]
     Active Substance: BUDESONIDE\FORMOTEROL FUMARATE DIHYDRATE
     Dosage: POWDER
  6. DILTIAZEM [Suspect]
     Active Substance: DILTIAZEM
     Indication: ANGINA PECTORIS
     Route: 048
  7. DOCUSATE SODIUM. [Concomitant]
     Active Substance: DOCUSATE SODIUM
  8. HALOPERIDOL. [Concomitant]
     Active Substance: HALOPERIDOL
  9. LEVOTHYROXINE. [Concomitant]
     Active Substance: LEVOTHYROXINE
  10. ONDANSETRON [Concomitant]
     Active Substance: ONDANSETRON
  11. TERBUTALINE [Concomitant]
     Active Substance: TERBUTALINE
  12. DIMENHYDRINATE. [Concomitant]
     Active Substance: DIMENHYDRINATE
  13. GLYCERIN. [Concomitant]
     Active Substance: GLYCERIN
  14. ENOXAPARIN [Concomitant]
     Active Substance: ENOXAPARIN
  15. VENLAFAXINE XR [Concomitant]
     Active Substance: VENLAFAXINE HYDROCHLORIDE
  16. BRILINTA [Suspect]
     Active Substance: TICAGRELOR
     Route: 048
  17. ATORVASTATIN CALCIUM. [Concomitant]
     Active Substance: ATORVASTATIN CALCIUM
  18. NITROGLYCERIN. [Concomitant]
     Active Substance: NITROGLYCERIN
  19. SENNOSIDES. [Concomitant]
     Active Substance: SENNOSIDES

REACTIONS (6)
  - Dysphagia [Unknown]
  - Blister [Unknown]
  - Toxic epidermal necrolysis [Unknown]
  - Pyrexia [Unknown]
  - Erythema [Unknown]
  - Vision blurred [Unknown]
